FAERS Safety Report 18324834 (Version 3)
Quarter: 2020Q4

REPORT INFORMATION
  Report Type: Spontaneous
  Country: US (occurrence: US)
  Receive Date: 20200929
  Receipt Date: 20201118
  Transmission Date: 20210113
  Serious: No
  Sender: FDA-Public Use
  Company Number: US-PFIZER INC-2020371740

PATIENT
  Age: 53 Year
  Sex: Female

DRUGS (1)
  1. IBRANCE [Suspect]
     Active Substance: PALBOCICLIB
     Indication: BREAST CANCER FEMALE
     Dosage: 125 MG, CYCLIC (EVERY DAY X 21 DAYS Q (EVERY) 28 DAYS)
     Dates: start: 20200522

REACTIONS (3)
  - Nausea [Not Recovered/Not Resolved]
  - Sleep disorder [Unknown]
  - Vomiting [Unknown]

NARRATIVE: CASE EVENT DATE: 2020
